FAERS Safety Report 6769323-5 (Version None)
Quarter: 2010Q2

REPORT INFORMATION
  Report Type: 
  Country: None (occurrence: None)
  Receive Date: 20100607
  Receipt Date: 20100601
  Transmission Date: 20101027
  Serious: Yes (Life-Threatening, Hospitalization, Other)
  Sender: FDA-Public Use
  Company Number: 2010SP025043

PATIENT
  Age: 48 Year
  Sex: Male
  Weight: 81 kg

DRUGS (6)
  1. PEG-INTRON [Suspect]
     Indication: HEPATITIS C
     Dosage: 120 MCG; QW;
     Dates: start: 20100218
  2. IBUPROFEN (OTHER MFR) (IBUPROFEN /00109201/) [Suspect]
     Indication: PAIN IN EXTREMITY
     Dosage: PRN
     Dates: start: 20100218, end: 20100501
  3. COPEGUS [Suspect]
     Indication: HEPATITIS C
     Dosage: 1200 MG; QD
     Dates: start: 20100218
  4. KIVEXA [Concomitant]
  5. TELZIR [Concomitant]
  6. NORVIR [Concomitant]

REACTIONS (9)
  - FALL [None]
  - GASTRIC HAEMORRHAGE [None]
  - GASTRITIS EROSIVE [None]
  - HAEMOGLOBIN DECREASED [None]
  - JEJUNAL ULCER [None]
  - LOCAL SWELLING [None]
  - NAUSEA [None]
  - PAIN IN EXTREMITY [None]
  - SMALL INTESTINAL HAEMORRHAGE [None]
